FAERS Safety Report 19067733 (Version 1)
Quarter: 2021Q1

REPORT INFORMATION
  Report Type: Spontaneous
  Country: US (occurrence: US)
  Receive Date: 20210326
  Receipt Date: 20210326
  Transmission Date: 20210420
  Serious: Yes (Other)
  Sender: FDA-Public Use
  Company Number: None

PATIENT
  Age: 63 Year
  Sex: Male
  Weight: 103.5 kg

DRUGS (3)
  1. PERRIGO POLYETHYLENE GLYCOL 3350 [Suspect]
     Active Substance: POLYETHYLENE GLYCOL 3350
     Indication: COLONOSCOPY
     Dosage: ?          QUANTITY:510 GRAMS;OTHER FREQUENCY:EVERY 20?30 MIN;?
     Route: 048
     Dates: start: 20210325, end: 20210325
  2. ASPIRIN. [Concomitant]
     Active Substance: ASPIRIN
  3. LISINIPROL [Concomitant]

REACTIONS (1)
  - Loss of consciousness [None]

NARRATIVE: CASE EVENT DATE: 20210325
